FAERS Safety Report 13342604 (Version 1)
Quarter: 2017Q1

REPORT INFORMATION
  Report Type: Spontaneous
  Country: US (occurrence: US)
  Receive Date: 20170316
  Receipt Date: 20170316
  Transmission Date: 20170428
  Serious: Yes (Other)
  Sender: FDA-Public Use
  Company Number: US-PFIZER INC-2017106680

PATIENT
  Sex: Female

DRUGS (1)
  1. XELJANZ XR [Suspect]
     Active Substance: TOFACITINIB CITRATE
     Dosage: 11 MG, UNK

REACTIONS (19)
  - Sjogren^s syndrome [Unknown]
  - Swelling [Unknown]
  - Malaise [Unknown]
  - Musculoskeletal stiffness [Unknown]
  - Fatigue [Unknown]
  - Peripheral swelling [Unknown]
  - Increased tendency to bruise [Unknown]
  - Myalgia [Recovering/Resolving]
  - Sleep disorder [Unknown]
  - Synovitis [Unknown]
  - Arthralgia [Unknown]
  - Raynaud^s phenomenon [Unknown]
  - Dysphonia [Unknown]
  - Activities of daily living impaired [Unknown]
  - Pyrexia [Unknown]
  - Neck pain [Unknown]
  - Crepitations [Unknown]
  - Headache [Unknown]
  - Weight decreased [Unknown]
